FAERS Safety Report 14669873 (Version 1)
Quarter: 2018Q1

REPORT INFORMATION
  Report Type: Not Available
  Country: US (occurrence: US)
  Receive Date: 20180322
  Receipt Date: 20180322
  Transmission Date: 20180509
  Serious: No
  Sender: FDA-Public Use
  Company Number: US-NEUROCRINE BIOSCIENCES INC.-2018NBI00256

PATIENT
  Sex: Male

DRUGS (1)
  1. INGREZZA [Suspect]
     Active Substance: VALBENAZINE
     Indication: TARDIVE DYSKINESIA
     Route: 048
     Dates: start: 201712, end: 201801

REACTIONS (1)
  - Gastrointestinal disorder [Not Recovered/Not Resolved]
